FAERS Safety Report 8111310-9 (Version None)
Quarter: 2012Q1

REPORT INFORMATION
  Report Type: 
  Country: None (occurrence: None)
  Receive Date: 20120203
  Receipt Date: 20110823
  Transmission Date: 20120608
  Serious: No
  Sender: FDA-Public Use
  Company Number: US-GLAXOSMITHKLINE-A0941994A

PATIENT
  Age: 47 Year
  Sex: Female

DRUGS (6)
  1. AMOXICILLIN [Suspect]
     Dosage: 500MG THREE TIMES PER DAY
     Dates: start: 20110818
  2. GEODON [Concomitant]
  3. LAMOTRIGINE [Suspect]
     Indication: BIPOLAR DISORDER
     Dosage: 1TAB PER DAY
     Route: 048
  4. IBUPROFEN (ADVIL) [Concomitant]
  5. AMOXICILLIN [Concomitant]
  6. WELLBUTRIN [Concomitant]

REACTIONS (5)
  - RASH ERYTHEMATOUS [None]
  - RASH [None]
  - BURNING SENSATION [None]
  - URTICARIA [None]
  - LOCAL SWELLING [None]
